FAERS Safety Report 14665705 (Version 3)
Quarter: 2019Q4

REPORT INFORMATION
  Report Type: Spontaneous
  Country: US (occurrence: US)
  Receive Date: 20180321
  Receipt Date: 20191022
  Transmission Date: 20200122
  Serious: Yes (Other)
  Sender: FDA-Public Use
  Company Number: US-PFIZER INC-2018113563

PATIENT
  Age: 57 Year
  Sex: Male

DRUGS (2)
  1. VIAGRA [Suspect]
     Active Substance: SILDENAFIL CITRATE
     Dosage: 100 MG, 1X EVERY 3 TO 4 MONTHS
     Route: 048
     Dates: start: 20060505, end: 201507
  2. VIAGRA [Suspect]
     Active Substance: SILDENAFIL CITRATE
     Indication: ERECTILE DYSFUNCTION
     Dosage: 100 MG, 1X EVERY 3 TO 4 MONTHS
     Route: 048
     Dates: start: 2005, end: 2005

REACTIONS (4)
  - Emotional distress [Unknown]
  - Malignant melanoma in situ [Unknown]
  - Anxiety [Unknown]
  - Lentigo maligna [Unknown]

NARRATIVE: CASE EVENT DATE: 20130909
